FAERS Safety Report 6907332-3 (Version None)
Quarter: 2010Q3

REPORT INFORMATION
  Report Type: 
  Country: None (occurrence: None)
  Receive Date: 20100802
  Receipt Date: 20100719
  Transmission Date: 20110219
  Serious: Yes (Hospitalization)
  Sender: FDA-Public Use
  Company Number: 644357

PATIENT
  Age: 64 Year
  Sex: Male
  Weight: 72.5755 kg

DRUGS (11)
  1. HEPARIN SODIUM INJECTION [Suspect]
     Indication: PRODUCT USED FOR UNKNOWN INDICATION
     Dosage: 5000 UNITS, ONCE, INTRAVENOUS
     Route: 042
  2. ASPIRIN [Suspect]
     Indication: PRODUCT USED FOR UNKNOWN INDICATION
     Dosage: 81 MILLIGRAM, 1EVERY 1 DAY(S) ; 325 MILLIGRAM ; 50 MILLIGRAM, 1 EVERY 1 DAY(S)
  3. PLAVIX [Suspect]
     Indication: PRODUCT USED FOR UNKNOWN INDICATION
     Dosage: 75 MILLIGRAM, 1EVERY 1 DAY(S), ORAL  ; 600 MILLIGRAM, ORAL  ; 150 MILLIGRAM, 1 EVERY 1 DAY(S), ORAL
     Route: 048
  4. REOPRO [Suspect]
     Indication: PRODUCT USED FOR UNKNOWN INDICATION
     Dosage: 2.0 MILLIGRAM/MILLILITERS ; 9.1ML ; 22.5ML, 1 EVERY 1 DAY(S)
  5. DOPAMINE HCL [Concomitant]
  6. FENTANYL CITRATE [Concomitant]
  7. (FUROSEMIDE) [Concomitant]
  8. (INSULIN) [Concomitant]
  9. MIDAZOLAM HCL [Concomitant]
  10. (PIPERACILLIN W/TAZOBACTAM) [Concomitant]
  11. LEVOPHED [Concomitant]

REACTIONS (4)
  - BLOOD PRESSURE DECREASED [None]
  - HYPOXIA [None]
  - PULMONARY ARTERIAL PRESSURE DECREASED [None]
  - PULMONARY HAEMORRHAGE [None]
